FAERS Safety Report 12636427 (Version 2)
Quarter: 2016Q3

REPORT INFORMATION
  Report Type: Spontaneous
  Country: CY (occurrence: CY)
  Receive Date: 20160809
  Receipt Date: 20160823
  Transmission Date: 20161109
  Serious: Yes (Life-Threatening, Hospitalization, Other)
  Sender: FDA-Public Use
  Company Number: PHHY2016CY108841

PATIENT
  Age: 47 Year
  Sex: Female

DRUGS (1)
  1. GILENYA [Suspect]
     Active Substance: FINGOLIMOD HYDROCHLORIDE
     Indication: RELAPSING-REMITTING MULTIPLE SCLEROSIS
     Dosage: 0.5 MG, QD
     Route: 048
     Dates: end: 20160719

REACTIONS (18)
  - Pyrexia [Recovered/Resolved]
  - Respiratory failure [Unknown]
  - Sinus tachycardia [Recovering/Resolving]
  - Blood pressure increased [Unknown]
  - Acinetobacter test positive [Unknown]
  - Depressed level of consciousness [Unknown]
  - Blood glucose increased [Unknown]
  - Klebsiella test positive [Unknown]
  - Heart rate increased [Unknown]
  - Tachypnoea [Unknown]
  - Haemodynamic instability [Unknown]
  - Atrophy [Unknown]
  - Musculoskeletal stiffness [Unknown]
  - Central nervous system lesion [Unknown]
  - Dyspnoea [Unknown]
  - Urinary tract infection [Not Recovered/Not Resolved]
  - Respiratory distress [Recovering/Resolving]
  - Enterococcus test positive [Unknown]

NARRATIVE: CASE EVENT DATE: 20160718
